FAERS Safety Report 5218149-2 (Version None)
Quarter: 2007Q1

REPORT INFORMATION
  Report Type: 
  Country: None (occurrence: None)
  Receive Date: 20061130
  Receipt Date: 20060727
  Transmission Date: 20070707
  Serious: Yes (Hospitalization)
  Sender: FDA-Public Use
  Company Number: US_0506119341

PATIENT
  Age: 42 Year
  Sex: Female
  Weight: 112.5 kg

DRUGS (2)
  1. ZYPREXA [Suspect]
     Dates: start: 19980101, end: 20030101
  2. HALOPERIDOL [Concomitant]

REACTIONS (2)
  - DIABETES MELLITUS NON-INSULIN-DEPENDENT [None]
  - METABOLIC DISORDER [None]
